FAERS Safety Report 11054407 (Version 1)
Quarter: 2015Q2

REPORT INFORMATION
  Report Type: Spontaneous
  Country: US (occurrence: US)
  Receive Date: 20150422
  Receipt Date: 20150422
  Transmission Date: 20150821
  Serious: No
  Sender: FDA-Public Use
  Company Number: US-BIOGENIDEC-2015BI051869

PATIENT
  Age: 48 Year
  Sex: Female

DRUGS (1)
  1. AVONEX [Suspect]
     Active Substance: INTERFERON BETA-1A
     Indication: MULTIPLE SCLEROSIS
     Route: 030
     Dates: start: 19991101

REACTIONS (7)
  - Myalgia [Unknown]
  - Dizziness [Unknown]
  - Fall [Unknown]
  - Balance disorder [Unknown]
  - Visual impairment [Unknown]
  - Headache [Unknown]
  - Diplopia [Unknown]

NARRATIVE: CASE EVENT DATE: 20141001
